FAERS Safety Report 23700048 (Version 1)
Quarter: 2024Q2

REPORT INFORMATION
  Report Type: Spontaneous
  Country: US (occurrence: US)
  Receive Date: 20240403
  Receipt Date: 20240403
  Transmission Date: 20240715
  Serious: No
  Sender: FDA-Public Use
  Company Number: US-HALEON-USCH2024015680

PATIENT
  Age: 76 Year
  Sex: Female

DRUGS (1)
  1. SENSODYNE CLINICAL WHITE ENAMEL STRENGTHENING [Suspect]
     Active Substance: POTASSIUM NITRATE\SODIUM FLUORIDE
     Indication: Product used for unknown indication
     Dosage: UNK
     Dates: start: 20240319, end: 20240321

REACTIONS (1)
  - Tooth discolouration [Unknown]

NARRATIVE: CASE EVENT DATE: 20240321
